FAERS Safety Report 5179184-6 (Version None)
Quarter: 2006Q4

REPORT INFORMATION
  Report Type: 
  Country: None (occurrence: None)
  Receive Date: 20061211
  Receipt Date: 20061128
  Transmission Date: 20070319
  Serious: Yes (Other)
  Sender: FDA-Public Use
  Company Number: HQWYE979012JUL04

PATIENT
  Age: 62 Year
  Sex: Female

DRUGS (3)
  1. PREMPRO [Suspect]
     Dates: start: 20000101, end: 20020701
  2. PREMARIN [Suspect]
     Dates: start: 19870101, end: 19980101
  3. PROVERA [Suspect]
     Dates: start: 19870101, end: 19980101

REACTIONS (13)
  - ANGINA UNSTABLE [None]
  - ANTINUCLEAR ANTIBODY POSITIVE [None]
  - CORONARY ARTERY OCCLUSION [None]
  - EJECTION FRACTION DECREASED [None]
  - ELECTROCARDIOGRAM ST SEGMENT DEPRESSION [None]
  - ELECTROCARDIOGRAM ST-T CHANGE [None]
  - ELECTROCARDIOGRAM T WAVE INVERSION [None]
  - MYOCARDIAL INFARCTION [None]
  - MYOCARDIAL ISCHAEMIA [None]
  - SYSTEMIC LUPUS ERYTHEMATOSUS [None]
  - THROAT IRRITATION [None]
  - VENTRICULAR DYSFUNCTION [None]
  - VENTRICULAR HYPOKINESIA [None]
